FAERS Safety Report 12354978 (Version 1)
Quarter: 2016Q2

REPORT INFORMATION
  Report Type: Spontaneous
  Country: US (occurrence: US)
  Receive Date: 20160511
  Receipt Date: 20160511
  Transmission Date: 20160815
  Serious: No
  Sender: FDA-Public Use
  Company Number: US-009507513-1605USA001410

PATIENT
  Sex: Female

DRUGS (1)
  1. NEXPLANON [Suspect]
     Active Substance: ETONOGESTREL
     Dosage: 1ROD / 3 YEARS
     Route: 059
     Dates: start: 20151214

REACTIONS (3)
  - Menorrhagia [Unknown]
  - Menstruation delayed [Recovered/Resolved]
  - Menstruation irregular [Unknown]

NARRATIVE: CASE EVENT DATE: 20151214
